FAERS Safety Report 6654526-0 (Version None)
Quarter: 2010Q1

REPORT INFORMATION
  Report Type: 
  Country: None (occurrence: None)
  Receive Date: 20100326
  Receipt Date: 20100323
  Transmission Date: 20100710
  Serious: Yes (Life-Threatening)
  Sender: FDA-Public Use
  Company Number: GB-ROCHE-692943

PATIENT
  Sex: Female
  Weight: 62 kg

DRUGS (3)
  1. BEVACIZUMAB [Suspect]
     Dosage: LAST DOSE PRIOR TO SAE: 22 APRIL 2009
     Route: 042
     Dates: start: 20080430
  2. PACLITAXEL [Suspect]
     Dosage: FORM: INFUSION; LAST DOSE PRIOR TO SAE: 13 AUGUST 2008
     Route: 042
     Dates: start: 20080430
  3. CARBOPLATIN [Suspect]
     Dosage: LAST DOSE PRIOR TO SAE: 13 AUGUST 2008
     Route: 042
     Dates: start: 20080430

REACTIONS (1)
  - DEPRESSION [None]
